FAERS Safety Report 20001187 (Version 1)
Quarter: 2021Q4

REPORT INFORMATION
  Report Type: Spontaneous
  Country: US (occurrence: US)
  Receive Date: 20211027
  Receipt Date: 20211027
  Transmission Date: 20220303
  Serious: Yes (Life-Threatening, Hospitalization, Other)
  Sender: FDA-Public Use
  Company Number: None

PATIENT
  Age: 63 Year
  Sex: Female
  Weight: 76.2 kg

DRUGS (1)
  1. REGEN-COV [Suspect]
     Active Substance: CASIRIVIMAB\IMDEVIMAB
     Indication: COVID-19
     Dosage: ?          OTHER FREQUENCY:ONCE;
     Route: 040
     Dates: start: 20211027, end: 20211027

REACTIONS (7)
  - Hypersensitivity [None]
  - Cough [None]
  - Urticaria [None]
  - Chest pain [None]
  - Back pain [None]
  - Blood pressure increased [None]
  - Oxygen saturation decreased [None]

NARRATIVE: CASE EVENT DATE: 20211027
